FAERS Safety Report 5223980-3 (Version None)
Quarter: 2007Q1

REPORT INFORMATION
  Report Type: 
  Country: None (occurrence: None)
  Receive Date: 20070130
  Receipt Date: 20070119
  Transmission Date: 20070707
  Serious: Yes (Hospitalization)
  Sender: FDA-Public Use
  Company Number: FR-GLAXOSMITHKLINE-B0450666A

PATIENT
  Age: 91 Year
  Sex: Female
  Weight: 41 kg

DRUGS (5)
  1. ADARTREL [Suspect]
     Route: 048
     Dates: end: 20061024
  2. PRETERAX [Suspect]
     Indication: ESSENTIAL HYPERTENSION
     Route: 048
  3. EFFERALGAN (FRANCE) [Concomitant]
     Route: 048
  4. HYDROCORTISONE [Concomitant]
     Route: 048
     Dates: start: 20060101
  5. XANAX [Concomitant]
     Dosage: .25MG PER DAY
     Route: 048

REACTIONS (8)
  - ARTHRALGIA [None]
  - BLOOD CORTISOL INCREASED [None]
  - C-REACTIVE PROTEIN INCREASED [None]
  - CARDIAC MURMUR [None]
  - FALL [None]
  - HYPERTENSION [None]
  - OEDEMA PERIPHERAL [None]
  - ORTHOSTATIC HYPOTENSION [None]
